FAERS Safety Report 15008197 (Version 2)
Quarter: 2018Q2

REPORT INFORMATION
  Report Type: Spontaneous
  Country: JP (occurrence: JP)
  Receive Date: 20180613
  Receipt Date: 20180625
  Transmission Date: 20180711
  Serious: Yes (Life-Threatening, Hospitalization)
  Sender: FDA-Public Use
  Company Number: JP-ELI_LILLY_AND_COMPANY-JP201806001856

PATIENT
  Age: 71 Year
  Sex: Male
  Weight: 67 kg

DRUGS (5)
  1. CYRAMZA [Suspect]
     Active Substance: RAMUCIRUMAB
     Indication: ADENOCARCINOMA GASTRIC
     Dosage: 567 MG, OTHER
     Route: 041
     Dates: start: 20180320, end: 20180515
  2. VONOSAP [Concomitant]
     Indication: HELICOBACTER INFECTION
     Dosage: 1 DF, DAILY
     Dates: start: 20180424, end: 20180430
  3. PACLITAXEL. [Suspect]
     Active Substance: PACLITAXEL
     Indication: ADENOCARCINOMA GASTRIC
     Dosage: 137 MG, OTHER
     Route: 041
     Dates: start: 20180320, end: 20180515
  4. MIYA-BM [Concomitant]
     Active Substance: CLOSTRIDIUM BUTYRICUM SPORES STRAIN M-55
     Indication: DIARRHOEA
     Dosage: 3 G, DAILY
     Route: 048
     Dates: start: 20180424
  5. OLOPATADINE HYDROCHLORIDE. [Concomitant]
     Active Substance: OLOPATADINE HYDROCHLORIDE
     Indication: PRURITUS
     Dosage: UNK, PRN
     Route: 048
     Dates: start: 20180424

REACTIONS (4)
  - Neutropenia [Recovered/Resolved]
  - Hypertension [Recovered/Resolved]
  - Neutropenia [Recovered/Resolved]
  - Thrombotic thrombocytopenic purpura [Recovering/Resolving]

NARRATIVE: CASE EVENT DATE: 20180327
